FAERS Safety Report 15123439 (Version 13)
Quarter: 2021Q1

REPORT INFORMATION
  Report Type: Report from Study
  Country: DE (occurrence: DE)
  Receive Date: 20180709
  Receipt Date: 20210319
  Transmission Date: 20210419
  Serious: Yes (Hospitalization, Other)
  Sender: FDA-Public Use
  Company Number: PHHY2018DE034994

PATIENT
  Sex: Female
  Weight: 72 kg

DRUGS (7)
  1. KISQALI [Suspect]
     Active Substance: RIBOCICLIB
     Indication: BREAST CANCER METASTATIC
     Dosage: 600 MG, QD (SCHEME: INTAKE 21 DAYS WITH 7 DAYS PAUSE)
     Route: 048
     Dates: start: 20180614, end: 20180625
  2. KISQALI [Suspect]
     Active Substance: RIBOCICLIB
     Dosage: 400 MG, QD  (SCHEME: INTAKE 21 DAYS WITH 7 DAYS PAUSE)
     Route: 048
     Dates: start: 20181212
  3. LIXIANA [Concomitant]
     Active Substance: EDOXABAN TOSYLATE
     Indication: ANTICOAGULANT THERAPY
     Dosage: 60 MG
     Route: 048
     Dates: start: 2018, end: 20181025
  4. LETROZOLE. [Suspect]
     Active Substance: LETROZOLE
     Indication: BREAST CANCER METASTATIC
     Dosage: 2.5 MG, QD
     Route: 048
     Dates: start: 20180614
  5. KISQALI [Suspect]
     Active Substance: RIBOCICLIB
     Dosage: 200 MG, QD  (SCHEME: INTAKE 21 DAYS WITH 7 DAYS PAUSE)
     Route: 048
     Dates: start: 20180814, end: 20181211
  6. KISQALI [Suspect]
     Active Substance: RIBOCICLIB
     Dosage: 600 MG, QD (SCHEME: INTAKE 21 DAYS WITH 7 DAYS PAUSE)
     Route: 048
     Dates: start: 20180626, end: 20180710
  7. KISQALI [Suspect]
     Active Substance: RIBOCICLIB
     Dosage: 400 MG, QD  (SCHEME: INTAKE 21 DAYS WITH 7 DAYS PAUSE)
     Route: 048
     Dates: start: 20180711, end: 20180725

REACTIONS (8)
  - Leukopenia [Recovered/Resolved]
  - Upper gastrointestinal haemorrhage [Recovered/Resolved]
  - Chronic obstructive pulmonary disease [Not Recovered/Not Resolved]
  - Angiodysplasia [Recovered/Resolved]
  - Haemoglobin decreased [Recovered/Resolved]
  - Thrombocytopenia [Recovered/Resolved]
  - Lymphoedema [Not Recovered/Not Resolved]
  - Melaena [Recovered/Resolved]

NARRATIVE: CASE EVENT DATE: 20180626
